FAERS Safety Report 5345156-1 (Version None)
Quarter: 2007Q2

REPORT INFORMATION
  Report Type: 
  Country: None (occurrence: None)
  Receive Date: 20070601
  Receipt Date: 20070601
  Transmission Date: 20071010
  Serious: Yes (Other)
  Sender: FDA-Public Use
  Company Number: None

PATIENT
  Age: 84 Year
  Sex: Male
  Weight: 68.0396 kg

DRUGS (1)
  1. BCG LIVE-INTRAVESICAL- 81MG/VIAL THERACYS PASTEUR SANOFI [Suspect]
     Indication: BLADDER CANCER
     Dosage: 81MG 1 VIAL/WK X 4 WKS INTRAVESICAL 1 TX/WK, SOME INTERUPTION
     Route: 043
     Dates: start: 20070409, end: 20070507

REACTIONS (6)
  - DYSURIA [None]
  - FATIGUE [None]
  - LETHARGY [None]
  - MICTURITION URGENCY [None]
  - POLLAKIURIA [None]
  - URINARY RETENTION [None]
